FAERS Safety Report 6558986-5 (Version None)
Quarter: 2010Q1

REPORT INFORMATION
  Report Type: 
  Country: None (occurrence: None)
  Receive Date: 20100129
  Receipt Date: 20100127
  Transmission Date: 20100710
  Serious: Yes (Death)
  Sender: FDA-Public Use
  Company Number: JP-SANOFI-AVENTIS-2010SA004997

PATIENT
  Age: 64 Year
  Sex: Female
  Weight: 51 kg

DRUGS (6)
  1. DOCETAXEL [Suspect]
     Dosage: ADMINISTERED 86MG/BODY
     Route: 041
     Dates: start: 20080325, end: 20080415
  2. DEXAMETHASONE [Concomitant]
     Indication: PROPHYLAXIS
     Route: 041
     Dates: start: 20080325, end: 20080415
  3. KYTRIL [Concomitant]
     Indication: PROPHYLAXIS
     Route: 041
     Dates: start: 20080325, end: 20080415
  4. ZOMETA [Concomitant]
     Indication: METASTASES TO BONE
     Dosage: ADMINISTERED ONCE EVERY FOUR WEEKS
     Route: 041
     Dates: start: 20080219, end: 20080422
  5. GARENOXACIN [Concomitant]
     Indication: PYREXIA
     Route: 048
     Dates: start: 20080419, end: 20080423
  6. NEU-UP [Concomitant]
     Indication: LEUKOPENIA
     Route: 058
     Dates: start: 20080419, end: 20080424

REACTIONS (1)
  - INTERSTITIAL LUNG DISEASE [None]
